FAERS Safety Report 23663195 (Version 2)
Quarter: 2024Q2

REPORT INFORMATION
  Report Type: Spontaneous
  Country: US (occurrence: None)
  Receive Date: 20240322
  Receipt Date: 20240503
  Transmission Date: 20240717
  Serious: No
  Sender: FDA-Public Use
  Company Number: 2024A054152

PATIENT
  Sex: Female

DRUGS (2)
  1. FASENRA [Suspect]
     Active Substance: BENRALIZUMAB
     Dosage: 30.0MG/ML UNKNOWN
     Route: 058
     Dates: start: 202306
  2. FASENRA [Suspect]
     Active Substance: BENRALIZUMAB
     Dosage: 30.0MG/ML UNKNOWN
     Route: 058
     Dates: end: 202312

REACTIONS (7)
  - Eosinophil count increased [Unknown]
  - Illness [Unknown]
  - Injection site pain [Unknown]
  - Asthma [Unknown]
  - COVID-19 [Unknown]
  - Incorrect dose administered by device [Unknown]
  - Device malfunction [Unknown]
